FAERS Safety Report 4498381-6 (Version None)
Quarter: 2004Q4

REPORT INFORMATION
  Report Type: 
  Country: None (occurrence: None)
  Receive Date: 20041102
  Receipt Date: 20041027
  Transmission Date: 20050328
  Serious: Yes (Hospitalization)
  Sender: FDA-Public Use
  Company Number: 2004-10-1763

PATIENT
  Age: 45 Year
  Sex: Male

DRUGS (9)
  1. CELESTAMINE TAB [Suspect]
     Indication: DIALYSIS
     Dosage: SEE IMAGE
     Route: 048
     Dates: start: 20041007, end: 20041013
  2. CELESTAMINE TAB [Suspect]
     Indication: PROCEDURAL COMPLICATION
     Dosage: SEE IMAGE
     Route: 048
     Dates: start: 20041007, end: 20041013
  3. CELESTAMINE TAB [Suspect]
     Indication: PRURITUS
     Dosage: SEE IMAGE
     Route: 048
     Dates: start: 20041007, end: 20041013
  4. CELESTAMINE TAB [Suspect]
     Indication: DIALYSIS
     Dosage: SEE IMAGE
     Route: 048
     Dates: start: 20041014, end: 20041020
  5. CELESTAMINE TAB [Suspect]
     Indication: PROCEDURAL COMPLICATION
     Dosage: SEE IMAGE
     Route: 048
     Dates: start: 20041014, end: 20041020
  6. CELESTAMINE TAB [Suspect]
     Indication: PRURITUS
     Dosage: SEE IMAGE
     Route: 048
     Dates: start: 20041014, end: 20041020
  7. CELESTAMINE TAB [Suspect]
     Indication: DIALYSIS
     Dosage: SEE IMAGE
     Route: 048
     Dates: start: 20041021
  8. CELESTAMINE TAB [Suspect]
     Indication: PROCEDURAL COMPLICATION
     Dosage: SEE IMAGE
     Route: 048
     Dates: start: 20041021
  9. CELESTAMINE TAB [Suspect]
     Indication: PRURITUS
     Dosage: SEE IMAGE
     Route: 048
     Dates: start: 20041021

REACTIONS (2)
  - CONFUSIONAL STATE [None]
  - PSYCHIATRIC SYMPTOM [None]
